FAERS Safety Report 5921784-7 (Version None)
Quarter: 2008Q4

REPORT INFORMATION
  Report Type: 
  Country: None (occurrence: None)
  Receive Date: 20081017
  Receipt Date: 20081008
  Transmission Date: 20090506
  Serious: Yes (Hospitalization)
  Sender: FDA-Public Use
  Company Number: CA-JNJFOC-20081002445

PATIENT
  Sex: Female
  Weight: 78 kg

DRUGS (3)
  1. REMICADE [Suspect]
     Dosage: TOTAL OF 63 INFUSIONS ADMINISTERED
     Route: 042
  2. REMICADE [Suspect]
     Indication: RHEUMATOID ARTHRITIS
     Route: 042
  3. METHOTREXATE [Concomitant]

REACTIONS (3)
  - ABDOMINAL PAIN [None]
  - BONE MARROW FAILURE [None]
  - FAECES DISCOLOURED [None]
